FAERS Safety Report 8922351 (Version 1)
Quarter: 2012Q4

REPORT INFORMATION
  Report Type: 
  Country: IT (occurrence: IT)
  Receive Date: 20121123
  Receipt Date: 20121123
  Transmission Date: 20130627
  Serious: Yes (Hospitalization)
  Sender: FDA-Public Use
  Company Number: IT-ABBOTT-12P-083-1008149-00

PATIENT
  Age: 43 Year
  Sex: Female

DRUGS (6)
  1. DEPAKINE [Suspect]
     Indication: DEPRESSION
     Dosage: 4 unit total
     Route: 048
     Dates: start: 20121110, end: 20121110
  2. DEPAKINE [Suspect]
     Indication: PERSONALITY DISORDER
  3. DELORAZEPAM [Suspect]
     Indication: DEPRESSION
     Dosage: 4 mg total
     Route: 048
     Dates: start: 20121110, end: 20121110
  4. DELORAZEPAM [Suspect]
     Indication: PERSONALITY DISORDER
  5. RIVOTRIL [Suspect]
     Indication: DEPRESSION
     Dosage: 4 unit total
     Route: 048
     Dates: start: 20121110, end: 20121110
  6. RIVOTRIL [Suspect]
     Indication: PERSONALITY DISORDER

REACTIONS (5)
  - Aphasia [Recovering/Resolving]
  - Abdominal pain [Recovering/Resolving]
  - Intentional self-injury [Recovering/Resolving]
  - Somnolence [Recovering/Resolving]
  - Overdose [Unknown]
